FAERS Safety Report 4443913-7 (Version None)
Quarter: 2004Q3

REPORT INFORMATION
  Report Type: 
  Country: None (occurrence: None)
  Receive Date: 20040729
  Receipt Date: 20030722
  Transmission Date: 20050211
  Serious: Yes (Other)
  Sender: FDA-Public Use
  Company Number: US-JNJFOC-20030601830

PATIENT
  Age: 9 Year
  Sex: Male

DRUGS (3)
  1. RISPERDAL [Suspect]
     Indication: AGGRESSION
     Dosage: 0.5 MG, 2 IN 1 DAY
     Dates: start: 20030501
  2. DEPAKOTE [Concomitant]
  3. PROZAC [Concomitant]

REACTIONS (4)
  - BLOOD CREATININE INCREASED [None]
  - BLOOD PROLACTIN INCREASED [None]
  - BLOOD UREA INCREASED [None]
  - WHITE BLOOD CELL COUNT DECREASED [None]
